FAERS Safety Report 9749407 (Version 1)
Quarter: 2013Q4

REPORT INFORMATION
  Report Type: Spontaneous
  Country: US (occurrence: US)
  Receive Date: 20131212
  Receipt Date: 20131212
  Transmission Date: 20140711
  Serious: No
  Sender: FDA-Public Use
  Company Number: US-BIOGENIDEC-2013BI093287

PATIENT
  Age: 46 Year
  Sex: Male
  Weight: 72 kg

DRUGS (25)
  1. TECFIDERA [Suspect]
     Indication: PRODUCT USED FOR UNKNOWN INDICATION
     Route: 048
  2. OXYBUTYNIN [Concomitant]
     Route: 048
  3. VITAMIN B COMPLEX [Concomitant]
     Route: 048
  4. PRAVASTATIN [Concomitant]
     Route: 048
  5. LOVAZA [Concomitant]
     Route: 048
  6. 5-HTP [Concomitant]
     Route: 048
  7. LORAZEPAM [Concomitant]
     Route: 048
  8. TURMERIC [Concomitant]
     Route: 048
  9. SAM- E [Concomitant]
     Route: 048
  10. GINSENG [Concomitant]
     Route: 048
  11. CYMBALTA [Concomitant]
     Route: 048
  12. KEPPRA [Concomitant]
     Route: 048
  13. BACLOFEN [Concomitant]
     Route: 048
  14. PANTOPRAZOLE [Concomitant]
     Route: 048
  15. HYDROCO/ APAP [Concomitant]
     Route: 048
  16. CAL- MAG- ZINC [Concomitant]
     Route: 048
  17. ROYAL JELLY [Concomitant]
     Route: 048
  18. L- GLUTAMINE [Concomitant]
     Route: 048
  19. CRANBERRY [Concomitant]
     Route: 048
  20. B-12 [Concomitant]
     Route: 048
  21. GARLIC [Concomitant]
     Route: 048
  22. D3 [Concomitant]
     Route: 048
  23. MAGNESIUM [Concomitant]
     Route: 048
  24. DHA COMPLETE [Concomitant]
     Route: 048
  25. MILK THISTLE [Concomitant]
     Route: 048

REACTIONS (5)
  - Somnolence [Unknown]
  - Hypotonia [Unknown]
  - Fatigue [Unknown]
  - Urine abnormality [Unknown]
  - Soliloquy [Unknown]
